FAERS Safety Report 8028937-5 (Version None)
Quarter: 2012Q1

REPORT INFORMATION
  Report Type: 
  Country: None (occurrence: None)
  Receive Date: 20120106
  Receipt Date: 20120102
  Transmission Date: 20120608
  Serious: Yes (Life-Threatening)
  Sender: FDA-Public Use
  Company Number: FR-ABBOTT-12P-056-0888634-00

PATIENT
  Age: 55 Year
  Sex: Male

DRUGS (5)
  1. DEPAKENE [Suspect]
     Indication: EPILEPSY
     Route: 048
     Dates: start: 20040301, end: 20040605
  2. ACETAMINOPHEN [Suspect]
     Indication: PRODUCT USED FOR UNKNOWN INDICATION
     Route: 048
     Dates: start: 20040603
  3. AMOXICILLIN [Suspect]
     Indication: TONSILLITIS
     Route: 048
     Dates: start: 20040603
  4. KERLONE [Concomitant]
     Indication: HYPERTENSION
  5. NEURONTIN [Concomitant]
     Indication: PRODUCT USED FOR UNKNOWN INDICATION
     Dates: end: 20040301

REACTIONS (1)
  - HEPATITIS FULMINANT [None]
